FAERS Safety Report 5859393-0 (Version None)
Quarter: 2008Q3

REPORT INFORMATION
  Report Type: 
  Country: None (occurrence: None)
  Receive Date: 20080826
  Receipt Date: 20080826
  Transmission Date: 20090109
  Serious: No
  Sender: FDA-Public Use
  Company Number: None

PATIENT
  Age: 22 Year
  Sex: Male
  Weight: 37.195 kg

DRUGS (2)
  1. BUPROPION HCL [Suspect]
     Indication: DEPRESSION
     Dosage: 100MG TWICE DAILY PO
     Route: 048
     Dates: start: 20080722, end: 20080825
  2. WELLBUTRIN XL [Suspect]

REACTIONS (3)
  - CONDITION AGGRAVATED [None]
  - NICOTINE DEPENDENCE [None]
  - THERAPEUTIC RESPONSE UNEXPECTED WITH DRUG SUBSTITUTION [None]
